APPROVED DRUG PRODUCT: PREPOPIK
Active Ingredient: CITRIC ACID; MAGNESIUM OXIDE; SODIUM PICOSULFATE
Strength: 12GM/PACKET;3.5GM/PACKET;10MG/PACKET **Federal Register determination that product was not discontinued or withdrawn for safety or effectiveness reasons**
Dosage Form/Route: FOR SOLUTION;ORAL
Application: N202535 | Product #001
Applicant: FERRING PHARMACEUTICALS INC
Approved: Jul 16, 2012 | RLD: Yes | RS: No | Type: DISCN

PATENTS:
Patent 8450338 | Expires: Oct 10, 2028
Patent 8481083 | Expires: Oct 10, 2028